FAERS Safety Report 5930189-4 (Version None)
Quarter: 2008Q4

REPORT INFORMATION
  Report Type: 
  Country: None (occurrence: None)
  Receive Date: 20081024
  Receipt Date: 20081014
  Transmission Date: 20090506
  Serious: Yes (Hospitalization)
  Sender: FDA-Public Use
  Company Number: BE-PFIZER INC-2008087135

PATIENT
  Sex: Male

DRUGS (4)
  1. SU-011,248 [Suspect]
     Indication: RENAL CELL CARCINOMA
     Route: 048
     Dates: start: 20060508, end: 20061105
  2. LASIX [Concomitant]
     Dates: start: 20060828, end: 20060906
  3. CEDOCARD [Concomitant]
     Dates: start: 20060902, end: 20060906
  4. CALCIUM BICARBONATE [Concomitant]
     Dates: start: 20060901, end: 20061113

REACTIONS (4)
  - ACUTE RESPIRATORY FAILURE [None]
  - BLOOD CREATININE INCREASED [None]
  - GENERAL PHYSICAL HEALTH DETERIORATION [None]
  - HAEMOLYTIC URAEMIC SYNDROME [None]
